FAERS Safety Report 24189757 (Version 1)
Quarter: 2024Q3

REPORT INFORMATION
  Report Type: Spontaneous
  Country: RU (occurrence: RU)
  Receive Date: 20240808
  Receipt Date: 20240808
  Transmission Date: 20241016
  Serious: Yes (Other)
  Sender: BAYER
  Company Number: RU-BAYER-2024A113956

PATIENT
  Age: 48 Year
  Sex: Female

DRUGS (1)
  1. DIENOGEST\ESTRADIOL VALERATE [Suspect]
     Active Substance: DIENOGEST\ESTRADIOL VALERATE
     Indication: Contraception
     Dosage: 1 DF, QD
     Route: 048
     Dates: start: 2016, end: 202407

REACTIONS (2)
  - Adenocarcinoma [None]
  - Uterine polyp [Recovered/Resolved]
